FAERS Safety Report 10536791 (Version 1)
Quarter: 2014Q4

REPORT INFORMATION
  Report Type: Spontaneous
  Country: US (occurrence: US)
  Receive Date: 20141022
  Receipt Date: 20141022
  Transmission Date: 20150529
  Serious: No
  Sender: FDA-Public Use
  Company Number: US-RECKITT BENCKISER PHARMACEUTICAL, INC-RB-70292-2014

PATIENT

DRUGS (1)
  1. SUBOXONE [Suspect]
     Active Substance: BUPRENORPHINE HYDROCHLORIDE\NALOXONE HYDROCHLORIDE
     Indication: PRODUCT USED FOR UNKNOWN INDICATION
     Dosage: UNK
     Route: 065

REACTIONS (13)
  - Nightmare [Recovered/Resolved]
  - Decreased appetite [Recovered/Resolved]
  - Thinking abnormal [Recovered/Resolved]
  - Muscle spasms [Recovered/Resolved]
  - Prescribed underdose [Recovered/Resolved]
  - Substance abuse [Unknown]
  - Anxiety [Recovered/Resolved]
  - Unevaluable event [Recovered/Resolved]
  - Abdominal pain lower [Recovered/Resolved]
  - Insomnia [Recovered/Resolved]
  - Limb discomfort [Recovered/Resolved]
  - Drug dependence [Recovered/Resolved]
  - Nausea [Recovered/Resolved]
